FAERS Safety Report 7380250-5 (Version None)
Quarter: 2011Q1

REPORT INFORMATION
  Report Type: 
  Country: None (occurrence: None)
  Receive Date: 20110324
  Receipt Date: 20110324
  Transmission Date: 20110831
  Serious: Yes (Hospitalization)
  Sender: FDA-Public Use
  Company Number: None

PATIENT
  Sex: Female
  Weight: 57.72 kg

DRUGS (2)
  1. ALIMTA [Suspect]
     Dosage: 805 MG
  2. CISPLATIN [Suspect]
     Dosage: 81 MG

REACTIONS (8)
  - PLATELET COUNT DECREASED [None]
  - FLANK PAIN [None]
  - ENDOMETRIAL CANCER METASTATIC [None]
  - HYDRONEPHROSIS [None]
  - HAEMOGLOBIN DECREASED [None]
  - PAIN [None]
  - PELVIC MASS [None]
  - HAEMATOCRIT DECREASED [None]
